FAERS Safety Report 7889498-4 (Version None)
Quarter: 2011Q4

REPORT INFORMATION
  Report Type: 
  Country: None (occurrence: None)
  Receive Date: 20111103
  Receipt Date: 20111026
  Transmission Date: 20120403
  Serious: Yes (Other)
  Sender: FDA-Public Use
  Company Number: SE-SANOFI-AVENTIS-2011SA070681

PATIENT
  Sex: Female

DRUGS (2)
  1. PLAVIX [Suspect]
     Indication: THROMBOCYTOSIS
     Route: 065
  2. HYDREA [Suspect]
     Route: 065

REACTIONS (2)
  - VASCULAR DEMENTIA [None]
  - OFF LABEL USE [None]
